FAERS Safety Report 20768340 (Version 1)
Quarter: 2022Q2

REPORT INFORMATION
  Report Type: Spontaneous
  Country: ET (occurrence: ET)
  Receive Date: 20220429
  Receipt Date: 20220429
  Transmission Date: 20220720
  Serious: No
  Sender: FDA-Public Use
  Company Number: ET-ALKEM LABORATORIES LIMITED-ET-ALKEM-2021-02172

PATIENT
  Sex: Female

DRUGS (2)
  1. LIDOCAINE [Suspect]
     Active Substance: LIDOCAINE
     Indication: Foetal death
     Dosage: UNK
     Route: 016
  2. LIDOCAINE [Suspect]
     Active Substance: LIDOCAINE
     Indication: Abortion induced

REACTIONS (1)
  - Exposure during pregnancy [Unknown]
